FAERS Safety Report 7504792-4 (Version None)
Quarter: 2011Q2

REPORT INFORMATION
  Report Type: 
  Country: None (occurrence: None)
  Receive Date: 20110525
  Receipt Date: 20101227
  Transmission Date: 20111010
  Serious: No
  Sender: FDA-Public Use
  Company Number: US-AMGEN-USASP2010011834

PATIENT
  Sex: Female

DRUGS (12)
  1. LABETALOL [Concomitant]
     Dosage: 1 MG, UNK
  2. OMEPRAZOLE [Concomitant]
     Dosage: 1 MG, UNK
  3. METHOCARBAMOL [Concomitant]
  4. DARVOCET [Concomitant]
  5. FERROUS SULFATE TAB [Concomitant]
  6. NORVASC [Concomitant]
     Dosage: 1 MG, UNK
  7. PROAIR HFA [Concomitant]
  8. LORAZEPAM [Concomitant]
  9. ARANESP [Suspect]
     Indication: PRODUCT USED FOR UNKNOWN INDICATION
     Dosage: 200 A?G, QWK
     Dates: start: 20100101
  10. ALLEGRA [Concomitant]
  11. TRAMADOL HCL [Concomitant]
  12. SIMVASTATIN [Concomitant]

REACTIONS (1)
  - HAEMOGLOBIN DECREASED [None]
